FAERS Safety Report 7409334-X (Version None)
Quarter: 2011Q1

REPORT INFORMATION
  Report Type: 
  Country: None (occurrence: None)
  Receive Date: 20110301
  Receipt Date: 20101013
  Transmission Date: 20110831
  Serious: Yes (Other)
  Sender: FDA-Public Use
  Company Number: RB-16673-2010

PATIENT
  Age: 13 Year
  Sex: Female

DRUGS (2)
  1. SUBOXONE [Suspect]
     Indication: PRODUCT USED FOR UNKNOWN INDICATION
     Dosage: (1 MG ORAL)
     Route: 048
     Dates: start: 20101013, end: 20101013
  2. KLONOPIN [Concomitant]

REACTIONS (1)
  - ACCIDENTAL EXPOSURE [None]
